FAERS Safety Report 17372266 (Version 1)
Quarter: 2020Q1

REPORT INFORMATION
  Report Type: Report from Study
  Country: US (occurrence: US)
  Receive Date: 20200205
  Receipt Date: 20200205
  Transmission Date: 20200409
  Serious: Yes (Hospitalization, Other)
  Sender: FDA-Public Use
  Company Number: US-ACTELION-A-NJ2019-184558

PATIENT
  Age: 67 Year
  Sex: Female

DRUGS (18)
  1. COMBIVENT RESPIMAT [Concomitant]
     Active Substance: ALBUTEROL SULFATE\IPRATROPIUM BROMIDE
     Dosage: UNK
     Dates: start: 20131114
  2. COREG [Concomitant]
     Active Substance: CARVEDILOL
     Dosage: 25 MG, BID
  3. BENTYL [Concomitant]
     Active Substance: DICYCLOMINE HYDROCHLORIDE
     Dosage: 10 MG, TID
     Dates: start: 20170321
  4. TRACLEER [Suspect]
     Active Substance: BOSENTAN
     Indication: PULMONARY ARTERIAL HYPERTENSION
     Dosage: 125 MG, UNK
     Route: 048
     Dates: start: 20130124
  5. FLEXERIL [Suspect]
     Active Substance: CYCLOBENZAPRINE HYDROCHLORIDE
     Indication: BACK PAIN
     Route: 065
  6. MIRALAX [Concomitant]
     Active Substance: POLYETHYLENE GLYCOL 3350
     Dosage: 1 G
  7. ALDACTONE [Concomitant]
     Active Substance: SPIRONOLACTONE
     Dosage: 50 MG
  8. CITALOPRAM [Concomitant]
     Active Substance: CITALOPRAM HYDROBROMIDE
     Dosage: 20 MG, QD
     Dates: start: 20140813
  9. ADCIRCA [Concomitant]
     Active Substance: TADALAFIL
  10. FENTANYL. [Concomitant]
     Active Substance: FENTANYL
     Dosage: UNK
     Dates: start: 20140813
  11. REGLAN [Concomitant]
     Active Substance: METOCLOPRAMIDE HYDROCHLORIDE
     Dosage: 5 MG, TID
     Dates: start: 20180206
  12. PRAVASTATIN. [Concomitant]
     Active Substance: PRAVASTATIN
     Dosage: 20 MG
     Dates: start: 20131114
  13. LORAZEPAM. [Concomitant]
     Active Substance: LORAZEPAM
     Dosage: UNK
     Dates: start: 20111208
  14. FLONASE [Concomitant]
     Active Substance: FLUTICASONE PROPIONATE
     Dosage: UNK
     Dates: start: 20180611
  15. TRACLEER [Suspect]
     Active Substance: BOSENTAN
     Dosage: 62.5 UNK
     Route: 048
  16. SYNTHROID [Concomitant]
     Active Substance: LEVOTHYROXINE SODIUM
     Dosage: 175 MCG
     Dates: start: 20111208
  17. ALLOPURINOL. [Concomitant]
     Active Substance: ALLOPURINOL
     Dosage: 300 MG, QD
     Dates: start: 20140813
  18. DULOXETINE. [Concomitant]
     Active Substance: DULOXETINE
     Dosage: 40 MG, QD

REACTIONS (46)
  - Dyspnoea [Not Recovered/Not Resolved]
  - Pulmonary hypertension [Unknown]
  - Mental status changes [Unknown]
  - Tinnitus [Unknown]
  - Neuropathy peripheral [Unknown]
  - Diarrhoea [Not Recovered/Not Resolved]
  - Chronic obstructive pulmonary disease [Unknown]
  - Diverticulitis [Unknown]
  - Confusional state [Unknown]
  - Nocturia [Unknown]
  - Rhinorrhoea [Unknown]
  - Deficiency anaemia [Unknown]
  - Bronchitis [Recovered/Resolved]
  - Hysterectomy [Unknown]
  - Uterine cancer [Recovering/Resolving]
  - Rash [Unknown]
  - Nausea [Unknown]
  - Vaginal haemorrhage [Recovered/Resolved]
  - Somnolence [Unknown]
  - Chills [Recovered/Resolved]
  - Respiratory distress [Unknown]
  - Sinusitis [Unknown]
  - Hypothyroidism [Unknown]
  - Dyspepsia [Unknown]
  - Asthma [Unknown]
  - Nasal congestion [Unknown]
  - Sleep apnoea syndrome [Unknown]
  - Dyspnoea exertional [Not Recovered/Not Resolved]
  - Abdominal pain [Unknown]
  - Hyperlipidaemia [Unknown]
  - Vision blurred [Unknown]
  - Cough [Recovered/Resolved]
  - Oedema peripheral [Recovered/Resolved]
  - Abdominal distension [Unknown]
  - Diarrhoea haemorrhagic [Unknown]
  - Vomiting [Not Recovered/Not Resolved]
  - Diabetes mellitus [Unknown]
  - Echocardiogram abnormal [Unknown]
  - Hypertension [Unknown]
  - Coronary artery disease [Unknown]
  - Urinary tract infection [Recovered/Resolved]
  - Deep vein thrombosis [Unknown]
  - Fluid retention [Not Recovered/Not Resolved]
  - Wheezing [Not Recovered/Not Resolved]
  - Back pain [Unknown]
  - Amnesia [Unknown]

NARRATIVE: CASE EVENT DATE: 20141216
